FAERS Safety Report 25724240 (Version 2)
Quarter: 2025Q3

REPORT INFORMATION
  Report Type: Spontaneous
  Country: EU (occurrence: EU)
  Receive Date: 20250826
  Receipt Date: 20250826
  Transmission Date: 20251021
  Serious: Yes (Congenital Anomaly, Other)
  Sender: AUROBINDO
  Company Number: EU-EMB-M202407124-1

PATIENT
  Sex: Female
  Weight: 3.34 kg

DRUGS (6)
  1. ASPIRIN [Suspect]
     Active Substance: ASPIRIN
     Indication: Moyamoya disease
     Dosage: 100 MILLIGRAM, ONCE A DAY
     Route: 064
     Dates: start: 202303, end: 202312
  2. AMLODIPINE [Suspect]
     Active Substance: AMLODIPINE BESYLATE
     Indication: Hypertension
     Dosage: 5 MILLIGRAM, TWO TIMES A DAY
     Route: 064
     Dates: start: 202303, end: 202312
  3. TOPIRAMATE [Suspect]
     Active Substance: TOPIRAMATE
     Indication: Migraine
     Dosage: 50 MILLIGRAM, TWO TIMES A DAY
     Route: 064
     Dates: start: 202303, end: 202305
  4. TOPIRAMATE [Suspect]
     Active Substance: TOPIRAMATE
     Indication: Aura
  5. TOPIRAMATE [Suspect]
     Active Substance: TOPIRAMATE
     Indication: Moyamoya disease
  6. METOPROLOL [Suspect]
     Active Substance: METOPROLOL
     Indication: Hypertension
     Dosage: 47.5 MILLIGRAM, ONCE A DAY
     Route: 064
     Dates: start: 202303, end: 202312

REACTIONS (5)
  - Congenital megaureter [Not Recovered/Not Resolved]
  - Congenital ureterocele [Not Recovered/Not Resolved]
  - Congenital hydronephrosis [Not Recovered/Not Resolved]
  - Kidney duplex [Not Recovered/Not Resolved]
  - Foetal exposure during pregnancy [Recovered/Resolved]

NARRATIVE: CASE EVENT DATE: 20231201
